FAERS Safety Report 8560995 (Version 2)
Quarter: 2014Q1

REPORT INFORMATION
  Report Type: Spontaneous
  Country: US (occurrence: US)
  Receive Date: 20120514
  Receipt Date: 20140310
  Transmission Date: 20141002
  Serious: Yes (Death)
  Sender: FDA-Public Use
  Company Number: US-GLAXOSMITHKLINE-A0871740A

PATIENT
  Age: 66 Year
  Sex: Female
  Weight: 227.3 kg

DRUGS (1)
  1. AVANDIA [Suspect]
     Indication: DIABETES MELLITUS
     Dosage: 4MG PER DAY
     Route: 048
     Dates: end: 20081108

REACTIONS (2)
  - Myocardial infarction [Fatal]
  - Cardiac failure congestive [Unknown]
